FAERS Safety Report 18349435 (Version 2)
Quarter: 2020Q4

REPORT INFORMATION
  Report Type: Spontaneous
  Country: IT (occurrence: IT)
  Receive Date: 20201006
  Receipt Date: 20201009
  Transmission Date: 20210114
  Serious: Yes (Other)
  Sender: FDA-Public Use
  Company Number: IT-MYLANLABS-2020M1083449

PATIENT
  Age: 91 Year
  Sex: Female

DRUGS (1)
  1. IBANDRONATE [Suspect]
     Active Substance: IBANDRONATE SODIUM
     Indication: OSTEOPOROSIS
     Dosage: 150 MILLIGRAM, QW
     Route: 048

REACTIONS (2)
  - Osteonecrosis of jaw [Recovered/Resolved]
  - Purulent discharge [Recovered/Resolved]

NARRATIVE: CASE EVENT DATE: 20200117
